FAERS Safety Report 5042837-4 (Version None)
Quarter: 2006Q3

REPORT INFORMATION
  Report Type: 
  Country: None (occurrence: None)
  Receive Date: 20060705
  Receipt Date: 20060630
  Transmission Date: 20061208
  Serious: Yes (Death, Hospitalization)
  Sender: FDA-Public Use
  Company Number: US-GLAXOSMITHKLINE-A0610908A

PATIENT
  Age: 24 Year
  Sex: Female

DRUGS (2)
  1. WELLBUTRIN [Suspect]
     Indication: DEPRESSION
     Dosage: 300MG PER DAY
     Route: 048
  2. ZOLOFT [Concomitant]

REACTIONS (3)
  - COMPLETED SUICIDE [None]
  - OVERDOSE [None]
  - SUICIDAL IDEATION [None]
